FAERS Safety Report 8283900-4 (Version None)
Quarter: 2012Q2

REPORT INFORMATION
  Report Type: 
  Country: None (occurrence: None)
  Receive Date: 20120413
  Receipt Date: 20120410
  Transmission Date: 20120825
  Serious: Yes (Hospitalization, Other)
  Sender: FDA-Public Use
  Company Number: DE-ELI_LILLY_AND_COMPANY-DE201202007055

PATIENT
  Age: 80 Year
  Sex: Male

DRUGS (9)
  1. RAMIPRIL [Concomitant]
     Dosage: 1 DF, UNKNOWN
  2. MIRTAZAPINE [Concomitant]
  3. TRAMADOL HCL [Concomitant]
     Dosage: UNK, PRN
  4. ADVANTAN [Concomitant]
     Dosage: UNK
  5. VOLTAREN                                /SCH/ [Concomitant]
     Dosage: UNK
  6. MOVIPREP [Concomitant]
     Dosage: UNK
  7. NAPROXEN [Concomitant]
     Dosage: UNK
  8. BYDUREON [Suspect]
     Indication: TYPE 2 DIABETES MELLITUS
     Dosage: 2 MG, WEEKLY (1/W)
     Route: 058
     Dates: start: 20111028, end: 20120216
  9. PRAMIPEXOLE DIHYDROCHLORIDE [Concomitant]
     Dosage: UNK

REACTIONS (7)
  - BLOOD TEST ABNORMAL [None]
  - RENAL FAILURE [None]
  - RENAL FAILURE ACUTE [None]
  - PORTAL HYPERTENSIVE GASTROPATHY [None]
  - HEPATIC NEOPLASM MALIGNANT [None]
  - BLOOD UREA INCREASED [None]
  - GASTRIC MUCOSA ERYTHEMA [None]
